FAERS Safety Report 4685969-2 (Version None)
Quarter: 2005Q2

REPORT INFORMATION
  Report Type: 
  Country: None (occurrence: None)
  Receive Date: 20050607
  Receipt Date: 20050607
  Transmission Date: 20051028
  Serious: No
  Sender: FDA-Public Use
  Company Number: None

PATIENT
  Age: 51 Year
  Sex: Female
  Weight: 62.5964 kg

DRUGS (1)
  1. LIPITOR [Suspect]
     Indication: BLOOD CHOLESTEROL INCREASED
     Dosage: 1 DAY
     Dates: start: 20050505, end: 20050527

REACTIONS (5)
  - ARTHRITIS [None]
  - BACK PAIN [None]
  - DIFFICULTY IN WALKING [None]
  - HEMIPARESIS [None]
  - MUSCLE SPASMS [None]
